FAERS Safety Report 15682520 (Version 2)
Quarter: 2021Q3

REPORT INFORMATION
  Report Type: Spontaneous
  Country: US (occurrence: US)
  Receive Date: 20181203
  Receipt Date: 20210820
  Transmission Date: 20211014
  Serious: No
  Sender: FDA-Public Use
  Company Number: US-PFIZER INC-2018293578

PATIENT
  Age: 3 Year
  Sex: Female

DRUGS (4)
  1. GENOTROPIN [Suspect]
     Active Substance: SOMATROPIN
     Dosage: 0.3 MG, DAILY
     Dates: start: 201806
  2. HYDROCORTISONE. [Concomitant]
     Active Substance: HYDROCORTISONE
     Dosage: UNK
  3. GENOTROPIN [Suspect]
     Active Substance: SOMATROPIN
     Dosage: 0.6 MG, DAILY
  4. LEVOTHYROXINE. [Concomitant]
     Active Substance: LEVOTHYROXINE
     Dosage: UNK

REACTIONS (16)
  - Basophil count increased [Unknown]
  - Bacteriuria [Unknown]
  - Carbon dioxide decreased [Unknown]
  - Haemoglobin decreased [Unknown]
  - Protein urine present [Unknown]
  - Blood urea increased [Unknown]
  - Blood urea nitrogen/creatinine ratio increased [Recovering/Resolving]
  - Neutrophil count increased [Unknown]
  - Mean cell haemoglobin decreased [Unknown]
  - Urine leukocyte esterase positive [Unknown]
  - Blood osmolarity decreased [Unknown]
  - Monocyte count increased [Unknown]
  - Anion gap increased [Unknown]
  - White blood cells urine positive [Unknown]
  - Blood potassium increased [Unknown]
  - Mean cell haemoglobin concentration decreased [Unknown]

NARRATIVE: CASE EVENT DATE: 20180724
